FAERS Safety Report 9633571 (Version 3)
Quarter: 2014Q1

REPORT INFORMATION
  Report Type: Report from Study
  Country: US (occurrence: US)
  Receive Date: 20131021
  Receipt Date: 20140124
  Transmission Date: 20141002
  Serious: Yes (Hospitalization)
  Sender: FDA-Public Use
  Company Number: PHEH2013US021752

PATIENT
  Age: 60 Year
  Sex: Female

DRUGS (1)
  1. GILENYA [Suspect]
     Indication: MULTIPLE SCLEROSIS
     Dosage: 0.5 MG, QD
     Route: 048

REACTIONS (7)
  - Central nervous system lesion [Unknown]
  - Disorientation [Unknown]
  - Confusional state [Unknown]
  - Pyrexia [Unknown]
  - Urinary incontinence [Unknown]
  - Faecal incontinence [Unknown]
  - Drug ineffective [Unknown]
